FAERS Safety Report 4545772-0 (Version None)
Quarter: 2005Q1

REPORT INFORMATION
  Report Type: 
  Country: None (occurrence: None)
  Receive Date: 20050106
  Receipt Date: 20041227
  Transmission Date: 20050727
  Serious: Yes (Hospitalization)
  Sender: FDA-Public Use
  Company Number: JP-JNJFOC-20040303797

PATIENT
  Sex: Male
  Weight: 50 kg

DRUGS (10)
  1. REMICADE [Suspect]
     Indication: FISTULA
     Route: 041
  2. REMICADE [Suspect]
     Indication: CROHN'S DISEASE
     Route: 041
  3. PENTASA [Concomitant]
     Route: 065
  4. MINOCIN [Concomitant]
     Route: 065
  5. ENTERAL NUTRITION [Concomitant]
  6. MINOMYCIN [Concomitant]
     Indication: CROHN'S DISEASE
     Dosage: 2 CAPSULES
  7. ELENTAL [Concomitant]
  8. ELENTAL [Concomitant]
     Indication: CROHN'S DISEASE
     Dosage: 2 PACKETS
  9. LOPEMIN [Concomitant]
     Dosage: 2 TABLETS
  10. CODEINE PHOSPHATE [Concomitant]

REACTIONS (3)
  - HAEMOPTYSIS [None]
  - PULMONARY TUBERCULOSIS [None]
  - RASH PAPULAR [None]
